FAERS Safety Report 22998334 (Version 4)
Quarter: 2024Q2

REPORT INFORMATION
  Report Type: Report from Study
  Country: US (occurrence: US)
  Receive Date: 20230928
  Receipt Date: 20240402
  Transmission Date: 20240716
  Serious: Yes (Other)
  Sender: FDA-Public Use
  Company Number: US-JAZZ-2021-US-026758

PATIENT
  Age: 26 Year
  Sex: Female

DRUGS (20)
  1. XYREM [Suspect]
     Active Substance: SODIUM OXYBATE
     Indication: Narcolepsy
     Dosage: UNK
  2. XYREM [Suspect]
     Active Substance: SODIUM OXYBATE
     Indication: Cataplexy
     Dosage: 4G AT BEDTIME BY MOUTH, THEN 3G MORE 2.5 OR 4 HOURS LATER
     Route: 048
  3. XYREM [Suspect]
     Active Substance: SODIUM OXYBATE
     Indication: Somnolence
  4. BETADINE [Suspect]
     Active Substance: POVIDONE-IODINE
     Indication: Product used for unknown indication
     Dosage: UNK
  5. SCOPOLAMINE [Suspect]
     Active Substance: SCOPOLAMINE
     Indication: Product used for unknown indication
  6. OMEPRAZOLE [Concomitant]
     Active Substance: OMEPRAZOLE
     Indication: Product used for unknown indication
     Dosage: UNK
     Dates: start: 20190430
  7. VENLAFAXINE HCL [Concomitant]
     Active Substance: VENLAFAXINE HYDROCHLORIDE
     Indication: Product used for unknown indication
     Dosage: UNK
     Dates: start: 20191028
  8. FOLBIC [Concomitant]
     Active Substance: CYANOCOBALAMIN\FOLIC ACID\PYRIDOXINE
     Indication: Product used for unknown indication
     Dosage: UNK
     Dates: start: 20200210
  9. ALBUTEROL [Concomitant]
     Active Substance: ALBUTEROL
     Indication: Wheezing
     Dosage: INHALE 2 PUFFS INTO THE LUNGS AS NEEDED, Q6H
  10. TESSALON [Concomitant]
     Active Substance: BENZONATATE
     Indication: Cough
     Dosage: 100 MILLIGRAM, TAKE 1 CAPSULE (100 MG TOTAL) BY MOUTH TID
     Route: 048
  11. ZYRTEC [Concomitant]
     Active Substance: CETIRIZINE HYDROCHLORIDE
     Indication: Product used for unknown indication
     Dosage: 10 MILLIGRAM, BID, TAKE 1 TABLET (10MG TOTAL) BY MOUTH IN THE MORNING AND 1 TABLET (10 MG TOTAL IN T
     Route: 048
  12. VITAMIN D3 [Concomitant]
     Active Substance: CHOLECALCIFEROL
     Indication: Product used for unknown indication
     Dosage: TAKE 50,000 UNITS BY MOUTH, QD
     Route: 048
  13. BENADRYL ALLERGY [Concomitant]
     Active Substance: DIPHENHYDRAMINE HYDROCHLORIDE
     Dosage: 25 MILLIGRAM, QD TAKE 1 TABLET (25 MG TOTAL) BY MOUTH NIGHTLY AS NEEDED
     Route: 048
  14. NEURONTIN [Concomitant]
     Active Substance: GABAPENTIN
     Dosage: TAKE 3 CAPSULES BY MOUTH IN THE MORNING AND 3 CAPSULES AT NOON, 3 CAPSULES IN THE EVENING, TID
     Route: 048
  15. MOBIC [Concomitant]
     Active Substance: MELOXICAM
     Dosage: 7.5 MILLIGRAM, BID TAKE 1 TABLET (7.5MG TOTAL) BY MOUTH TWO TIMES DAILY AS NEEDED
     Route: 048
  16. TOPROL XL [Concomitant]
     Active Substance: METOPROLOL SUCCINATE
     Indication: Product used for unknown indication
     Dosage: 25 MILLIGRAM, QD TAKE 1 TABLET (25 MG TOTAL) BY MOUTH DAILY
     Route: 048
  17. SINGULAIR [Concomitant]
     Active Substance: MONTELUKAST SODIUM
     Indication: Product used for unknown indication
     Dosage: 10 MILLIGRAM, QD TAKE 1 TABLET (10 MG TOTAL) BY MOUTH DAILY
     Route: 048
  18. MAXALT [Concomitant]
     Active Substance: RIZATRIPTAN BENZOATE
     Indication: Migraine
     Dosage: 10 MILLIGRAM, TAKE 1 TABLET (10 MG TOTAL) BY MOUTH AS NEEDED FOR MIGRAINE, MAY REPEAT 2 HRS IF NEEDE
     Route: 048
  19. TRANSDERM SCOP [Concomitant]
     Active Substance: SCOPOLAMINE
     Dosage: PLACE 1 PATCH ONTO THE SKIN EVERY THIRD DAY
  20. EFFEXOR [Concomitant]
     Active Substance: VENLAFAXINE HYDROCHLORIDE
     Indication: Product used for unknown indication

REACTIONS (5)
  - Surgery [Unknown]
  - Sleep apnoea syndrome [Unknown]
  - Helicobacter infection [Unknown]
  - Drug hypersensitivity [Unknown]
  - Product administration interrupted [Unknown]

NARRATIVE: CASE EVENT DATE: 20210601
